FAERS Safety Report 16754421 (Version 5)
Quarter: 2020Q3

REPORT INFORMATION
  Report Type: Report from Study
  Country: US (occurrence: US)
  Receive Date: 20190829
  Receipt Date: 20200708
  Transmission Date: 20201102
  Serious: Yes (Hospitalization)
  Sender: FDA-Public Use
  Company Number: PHHO2019US008648

PATIENT
  Age: 11 Year
  Sex: Male

DRUGS (13)
  1. HEPARIN [Concomitant]
     Active Substance: HEPARIN SODIUM
     Indication: CATHETER MANAGEMENT
     Dosage: 2000 MILLIGRAM
     Route: 065
     Dates: start: 20190813
  2. LIDOCAINE. [Concomitant]
     Active Substance: LIDOCAINE
     Indication: MEDICAL PROCEDURE
     Dosage: APPLY 2 HRS PRIOR TO ACCESSING, PRN
     Route: 061
     Dates: start: 20190813
  3. MACROGOL [Concomitant]
     Active Substance: POLYETHYLENE GLYCOLS
     Indication: CONSTIPATION
     Dosage: 3350 BID
     Route: 048
     Dates: start: 20190813
  4. OXYCODONE AND ACETAMINOPHEN [Concomitant]
     Active Substance: ACETAMINOPHEN\OXYCODONE HYDROCHLORIDE
     Indication: PAIN
     Dosage: 5?325 MG, Q6H, PRN
     Route: 065
     Dates: start: 20190814
  5. MERCAPTOPURINE. [Suspect]
     Active Substance: MERCAPTOPURINE
     Indication: ACUTE LYMPHOCYTIC LEUKAEMIA
     Dosage: 100 MILLIGRAM (TUE, WED, THU, FRI) / 75 MILLIGRAM (SAT, SUN, MON)
     Route: 048
     Dates: start: 20190813
  6. CYCLOPHOSPHAMIDE. [Suspect]
     Active Substance: CYCLOPHOSPHAMIDE
     Indication: ACUTE LYMPHOCYTIC LEUKAEMIA
     Dosage: 1000 MILLIGRAM/SQ. METER
     Route: 037
     Dates: start: 20190813
  7. CYTARABINE. [Suspect]
     Active Substance: CYTARABINE
     Indication: ACUTE LYMPHOCYTIC LEUKAEMIA
     Dosage: 75 MILLIGRAM/SQ. METER
     Route: 042
     Dates: start: 20190813
  8. CLINDAMYCIN. [Concomitant]
     Active Substance: CLINDAMYCIN
     Indication: PARONYCHIA
     Dosage: 150 MILLIGRAM, TID
     Route: 048
     Dates: start: 20190813, end: 20190817
  9. BACTRIM [Concomitant]
     Active Substance: SULFAMETHOXAZOLE\TRIMETHOPRIM
     Indication: PROPHYLAXIS
     Dosage: 400?80 MG, BID (FRI, SAT, SUN)
     Route: 048
     Dates: start: 20190813, end: 20190820
  10. INC424A [Suspect]
     Active Substance: RUXOLITINIB
     Indication: ACUTE LYMPHOCYTIC LEUKAEMIA
     Dosage: 75 MG, UNK
     Route: 048
     Dates: start: 20190813
  11. AMLODIPINE [Concomitant]
     Active Substance: AMLODIPINE BESYLATE
     Indication: SECONDARY HYPERTENSION
     Dosage: 5 MILLIGRAM, QD
     Route: 048
     Dates: start: 20190813
  12. METHOTREXATE. [Suspect]
     Active Substance: METHOTREXATE
     Indication: ACUTE LYMPHOCYTIC LEUKAEMIA
     Dosage: 15 MG, UNK
     Route: 037
     Dates: start: 20190813
  13. ONDANSETRON [Concomitant]
     Active Substance: ONDANSETRON
     Indication: NAUSEA
     Dosage: 4 MILLIGRAM, Q8H, PRN
     Route: 048
     Dates: start: 20190813

REACTIONS (1)
  - Febrile neutropenia [Recovered/Resolved]

NARRATIVE: CASE EVENT DATE: 20190815
